FAERS Safety Report 7641782-5 (Version None)
Quarter: 2011Q3

REPORT INFORMATION
  Report Type: 
  Country: None (occurrence: None)
  Receive Date: 20110728
  Receipt Date: 20110719
  Transmission Date: 20111222
  Serious: Yes (Other)
  Sender: FDA-Public Use
  Company Number: US-ROCHE-773036

PATIENT
  Sex: Female
  Weight: 66.7 kg

DRUGS (1)
  1. ACCUTANE [Suspect]
     Indication: ACNE
     Dosage: 18 MONTHS
     Route: 065
     Dates: start: 19980101, end: 20000101

REACTIONS (12)
  - INFLAMMATORY BOWEL DISEASE [None]
  - COLITIS ULCERATIVE [None]
  - NERVOUSNESS [None]
  - DEPRESSION [None]
  - ANXIETY [None]
  - DEATH OF RELATIVE [None]
  - CROHN'S DISEASE [None]
  - WEIGHT DECREASED [None]
  - ANHEDONIA [None]
  - DECREASED INTEREST [None]
  - PANIC ATTACK [None]
  - PNEUMONIA [None]
